FAERS Safety Report 14289894 (Version 1)
Quarter: 2017Q4

REPORT INFORMATION
  Report Type: Spontaneous
  Country: US (occurrence: None)
  Receive Date: 20171215
  Receipt Date: 20171215
  Transmission Date: 20180321
  Serious: No
  Sender: FDA-Public Use
  Company Number: None

PATIENT
  Age: 53 Year
  Sex: Female

DRUGS (1)
  1. OTREXUP [Suspect]
     Active Substance: METHOTREXATE
     Indication: POLYMYALGIA RHEUMATICA
     Route: 058
     Dates: start: 201609

REACTIONS (3)
  - Fatigue [None]
  - Extra dose administered [None]
  - Memory impairment [None]

NARRATIVE: CASE EVENT DATE: 20171211
